FAERS Safety Report 5096103-1 (Version None)
Quarter: 2006Q3

REPORT INFORMATION
  Report Type: 
  Country: None (occurrence: None)
  Receive Date: 20060731
  Receipt Date: 20060512
  Transmission Date: 20061208
  Serious: No
  Sender: FDA-Public Use
  Company Number: 2006PV013772

PATIENT
  Age: 52 Year
  Sex: Female
  Weight: 96.6162 kg

DRUGS (4)
  1. BYETTA [Suspect]
     Indication: DIABETES MELLITUS NON-INSULIN-DEPENDENT
     Dosage: 10 MCG;BID;SC
     Route: 058
     Dates: start: 20060501
  2. BYETTA [Suspect]
     Indication: DRUG USE FOR UNKNOWN INDICATION
     Dosage: 5MCG;BID;SC
     Route: 058
     Dates: start: 20060330, end: 20060430
  3. METFORMIN HCL [Suspect]
     Indication: DRUG USE FOR UNKNOWN INDICATION
     Dosage: 2000 MG;QD; PO
     Route: 048
  4. ZOCOR ^MERCK FROSST^ [Concomitant]

REACTIONS (3)
  - DECREASED APPETITE [None]
  - STOMACH DISCOMFORT [None]
  - WEIGHT DECREASED [None]
